FAERS Safety Report 9622944 (Version 6)
Quarter: 2015Q2

REPORT INFORMATION
  Report Type: Spontaneous
  Country: US (occurrence: US)
  Receive Date: 20131015
  Receipt Date: 20150529
  Transmission Date: 20150821
  Serious: Yes (Death, Hospitalization, Other)
  Sender: FDA-Public Use
  Company Number: US-MERCK-1310USA006002

PATIENT
  Sex: Male
  Weight: 99.77 kg

DRUGS (3)
  1. JANUVIA [Suspect]
     Active Substance: SITAGLIPTIN PHOSPHATE
     Indication: TYPE 2 DIABETES MELLITUS
     Dosage: 50 MG, QD
     Route: 048
     Dates: start: 200712
  2. JANUMET [Suspect]
     Active Substance: METFORMIN HYDROCHLORIDE\SITAGLIPTIN PHOSPHATE
     Dosage: 50 MG/1000 MG, UNK
     Route: 048
     Dates: start: 20071211, end: 20110131
  3. JANUMET [Suspect]
     Active Substance: METFORMIN HYDROCHLORIDE\SITAGLIPTIN PHOSPHATE
     Indication: TYPE 2 DIABETES MELLITUS
     Dosage: 50 MG/1000 MG, BID
     Route: 048
     Dates: start: 200712

REACTIONS (33)
  - Hepatorenal syndrome [Unknown]
  - Hyperlipidaemia [Unknown]
  - Diverticulum [Unknown]
  - Dermatitis contact [Unknown]
  - Metastases to lymph nodes [Unknown]
  - Renal cyst [Unknown]
  - Metastatic neoplasm [Unknown]
  - Hernia [Unknown]
  - Adenoidectomy [Unknown]
  - Metastases to liver [Fatal]
  - Sciatica [Unknown]
  - Electrolyte imbalance [Unknown]
  - Surgery [Unknown]
  - Renal failure [Fatal]
  - Depression [Unknown]
  - Testicular failure [Unknown]
  - Benign prostatic hyperplasia [Unknown]
  - Tonsillectomy [Unknown]
  - Nephrolithiasis [Unknown]
  - Back pain [Unknown]
  - Radiotherapy [Unknown]
  - Inguinal hernia repair [Unknown]
  - Lymphadenopathy [Unknown]
  - Paracentesis [Unknown]
  - Essential hypertension [Unknown]
  - Testicular hyperfunction [Unknown]
  - Mole excision [Unknown]
  - Pollakiuria [Unknown]
  - Constipation [Unknown]
  - Pancreatic carcinoma metastatic [Fatal]
  - Hepatic failure [Unknown]
  - Rash [Unknown]
  - Pain in extremity [Unknown]

NARRATIVE: CASE EVENT DATE: 201003
